FAERS Safety Report 5984283-2 (Version None)
Quarter: 2008Q4

REPORT INFORMATION
  Report Type: 
  Country: None (occurrence: None)
  Receive Date: 20081205
  Receipt Date: 20081205
  Transmission Date: 20090506
  Serious: Yes (Hospitalization)
  Sender: FDA-Public Use
  Company Number: None

PATIENT
  Sex: Female
  Weight: 74 kg

DRUGS (4)
  1. FLUOROURACIL [Suspect]
     Dosage: 12690 MG
     Dates: end: 20081028
  2. BEVACIZUMAB (RHUMAB VEGF) [Suspect]
     Dosage: 1435 MG
     Dates: end: 20081028
  3. CAMPTOSAR [Suspect]
     Dosage: 837 MG
     Dates: end: 20081028
  4. LEUCOVORIN CALCIUM [Suspect]
     Dosage: 2092 MG
     Dates: end: 20081028

REACTIONS (1)
  - PULMONARY EMBOLISM [None]
